FAERS Safety Report 8997867 (Version 3)
Quarter: 2013Q1

REPORT INFORMATION
  Report Type: Other
  Country: GB (occurrence: GB)
  Receive Date: 20130104
  Receipt Date: 20130131
  Transmission Date: 20140127
  Serious: Yes (Other)
  Sender: FDA-Public Use
  Company Number: GB-WATSON-2012-23255

PATIENT
  Age: 76 Year
  Sex: Male
  Weight: 94.5 kg

DRUGS (4)
  1. ATENOLOL (UNKNOWN) [Suspect]
     Indication: HYPERTENSION
     Dosage: 50 MG, DAILY
     Route: 048
     Dates: start: 1972
  2. ATENOLOL (UNKNOWN) [Suspect]
     Dosage: 50 MG, DAILY
     Route: 048
     Dates: start: 20070607
  3. DIURETIC                           /00022001/ [Concomitant]
     Indication: PRODUCT USED FOR UNKNOWN INDICATION
     Dosage: UNK, UNKNOWN
     Route: 065
  4. CLOPIDOGREL [Concomitant]
     Indication: PRODUCT USED FOR UNKNOWN INDICATION
     Dosage: UNK, UNKNOWN
     Route: 065

REACTIONS (3)
  - Cerebrovascular accident [Recovering/Resolving]
  - Central nervous system lesion [Recovering/Resolving]
  - Cerebral ischaemia [Unknown]
